FAERS Safety Report 23262189 (Version 4)
Quarter: 2024Q1

REPORT INFORMATION
  Report Type: Report from Study
  Country: US (occurrence: US)
  Receive Date: 20231205
  Receipt Date: 20240130
  Transmission Date: 20240409
  Serious: Yes (Other)
  Sender: FDA-Public Use
  Company Number: US-ABBVIE-5519516

PATIENT
  Age: 73 Year
  Sex: Female

DRUGS (3)
  1. IMBRUVICA [Suspect]
     Active Substance: IBRUTINIB
     Indication: Chronic lymphocytic leukaemia
     Dosage: LAST ADMIN: 2022
     Route: 048
     Dates: start: 202206
  2. IMBRUVICA [Suspect]
     Active Substance: IBRUTINIB
     Indication: Chronic lymphocytic leukaemia
     Route: 048
     Dates: start: 20190603
  3. IMBRUVICA [Suspect]
     Active Substance: IBRUTINIB
     Indication: Chronic lymphocytic leukaemia
     Route: 048
     Dates: start: 20221027

REACTIONS (12)
  - Blood urine present [Recovered/Resolved]
  - Cystitis haemorrhagic [Unknown]
  - Haematuria [Unknown]
  - Urine odour abnormal [Unknown]
  - Platelet count decreased [Unknown]
  - Bladder hypertrophy [Unknown]
  - Bladder obstruction [Unknown]
  - Neurogenic bladder [Unknown]
  - Cystitis [Unknown]
  - Heart rate abnormal [Unknown]
  - Back pain [Unknown]
  - Renal function test abnormal [Unknown]

NARRATIVE: CASE EVENT DATE: 20231125
